FAERS Safety Report 7293822-3 (Version None)
Quarter: 2011Q1

REPORT INFORMATION
  Report Type: 
  Country: None (occurrence: None)
  Receive Date: 20110203
  Receipt Date: 20110124
  Transmission Date: 20110831
  Serious: Yes (Hospitalization)
  Sender: FDA-Public Use
  Company Number: 026052

PATIENT
  Sex: Male

DRUGS (15)
  1. AUGMENTIN '125' [Suspect]
     Dosage: 1 G TID, ORAL
     Route: 048
     Dates: start: 20101216, end: 20101223
  2. LOVENOX [Concomitant]
  3. DURAGESIC-100 [Concomitant]
  4. EXACYL (EXACYL) [Suspect]
     Indication: HAEMOPTYSIS
     Dosage: 500 MG QID, ORAL
     Route: 048
     Dates: start: 20101220
  5. NEORAL [Concomitant]
  6. SOLUTIONS FOR PARENTERAL NUTRITION (OLIMEL) [Suspect]
     Dosage: 1 LITER,
     Dates: end: 20101224
  7. LEXOMIL [Concomitant]
  8. SOLU-MEDROL [Concomitant]
  9. RANITIDINE [Concomitant]
  10. CERTICAN [Concomitant]
  11. PERFALGAN [Concomitant]
  12. XANAX [Suspect]
     Dosage: 0.75 MG, ORAL
     Route: 048
     Dates: start: 20101210
  13. KEPPRA [Suspect]
     Indication: CLONUS
     Dosage: 500 MG BID, ORAL
     Route: 048
     Dates: start: 20101210
  14. INIPOMP (INIPOMP) [Suspect]
     Indication: OESOPHAGITIS
     Dosage: 40 MG ORAL
     Route: 048
     Dates: start: 20101213, end: 20101223
  15. TARCEVA (TARCEVA) (NOT SPECIFIED) [Suspect]
     Indication: ADENOCARCINOMA
     Dosage: 150 MG ORAL
     Route: 048
     Dates: start: 20101218

REACTIONS (5)
  - MACROPHAGE ACTIVATION [None]
  - THROMBOCYTOPENIA [None]
  - HISTIOCYTOSIS HAEMATOPHAGIC [None]
  - HAEMOPTYSIS [None]
  - CONDITION AGGRAVATED [None]
